FAERS Safety Report 5593543-9 (Version None)
Quarter: 2008Q1

REPORT INFORMATION
  Report Type: 
  Country: None (occurrence: None)
  Receive Date: 20080116
  Receipt Date: 20080115
  Transmission Date: 20080703
  Serious: Yes (Other)
  Sender: FDA-Public Use
  Company Number: US-ROCHE-540007

PATIENT
  Age: 43 Year
  Sex: Female

DRUGS (2)
  1. PEG-INTERFERON A-2A (RO 25-8310) [Suspect]
     Dosage: FORM: PREFILLED SYRINGE
     Route: 065
     Dates: start: 20070910
  2. RIBAVIRIN [Suspect]
     Route: 065
     Dates: start: 20070910

REACTIONS (8)
  - ANAEMIA [None]
  - ANOREXIA [None]
  - APPENDICITIS [None]
  - DRUG DOSE OMISSION [None]
  - DYSPNOEA [None]
  - FATIGUE [None]
  - GASTROOESOPHAGEAL REFLUX DISEASE [None]
  - INCISION SITE INFECTION [None]
